FAERS Safety Report 12586819 (Version 1)
Quarter: 2016Q3

REPORT INFORMATION
  Report Type: Spontaneous
  Country: US (occurrence: None)
  Receive Date: 20160722
  Receipt Date: 20160722
  Transmission Date: 20161109
  Serious: Yes (Other)
  Sender: FDA-Public Use
  Company Number: None

PATIENT
  Age: 26 Year
  Sex: Female
  Weight: 90.72 kg

DRUGS (1)
  1. SERTRALINE 50MG [Suspect]
     Active Substance: SERTRALINE HYDROCHLORIDE
     Indication: PERINATAL DEPRESSION
     Route: 048
     Dates: start: 20160205, end: 20160720

REACTIONS (7)
  - Suicidal ideation [None]
  - Constipation [None]
  - Irritability [None]
  - Dyspepsia [None]
  - Feeling of despair [None]
  - Coordination abnormal [None]
  - Anxiety [None]

NARRATIVE: CASE EVENT DATE: 20160720
